FAERS Safety Report 5237471-7 (Version None)
Quarter: 2007Q1

REPORT INFORMATION
  Report Type: 
  Country: None (occurrence: None)
  Receive Date: 20070213
  Receipt Date: 20070201
  Transmission Date: 20070707
  Serious: Yes (Death, Other)
  Sender: FDA-Public Use
  Company Number: JP-ELI_LILLY_AND_COMPANY-JP200701004845

PATIENT
  Age: 61 Year
  Sex: Male
  Weight: 67 kg

DRUGS (7)
  1. GEMZAR [Suspect]
     Indication: PANCREATIC CARCINOMA STAGE IV
     Dosage: 1700 MG, OTHER
     Route: 042
     Dates: start: 20061129, end: 20061129
  2. KYTRIL [Concomitant]
     Indication: PROPHYLAXIS
     Dosage: 3 MG, DAILY (1/D)
     Route: 042
     Dates: start: 20061129, end: 20061129
  3. OMNIPAQUE 140 [Concomitant]
     Indication: ANGIOGRAM
     Route: 013
     Dates: start: 20061124, end: 20061124
  4. TAKEPRON [Concomitant]
     Indication: PROPHYLAXIS
     Dosage: 30 MG, DAILY (1/D)
     Route: 048
     Dates: start: 20061116
  5. LOXONIN [Concomitant]
     Indication: CANCER PAIN
     Dosage: 60 MG, 3/D
     Route: 048
     Dates: start: 20061116
  6. DUROTEP JANSSEN [Concomitant]
     Indication: CANCER PAIN
     Dosage: 2.5 MG, UNK
     Route: 023
     Dates: start: 20061128
  7. IOPAMIRON [Concomitant]
     Indication: COMPUTERISED TOMOGRAM
     Route: 042
     Dates: start: 20061122, end: 20061122

REACTIONS (6)
  - C-REACTIVE PROTEIN INCREASED [None]
  - HYPOXIA [None]
  - INFECTION [None]
  - RENAL FAILURE ACUTE [None]
  - RENAL TUBULAR NECROSIS [None]
  - WHITE BLOOD CELL COUNT INCREASED [None]
